FAERS Safety Report 9689727 (Version 2)
Quarter: 2013Q4

REPORT INFORMATION
  Report Type: Spontaneous
  Country: AT (occurrence: AT)
  Receive Date: 20131115
  Receipt Date: 20131115
  Transmission Date: 20140711
  Serious: Yes (Hospitalization)
  Sender: FDA-Public Use
  Company Number: AT-JNJFOC-20131102467

PATIENT
  Age: 72 Year
  Sex: Male

DRUGS (6)
  1. XARELTO [Suspect]
     Indication: CEREBROVASCULAR ACCIDENT PROPHYLAXIS
     Route: 048
  2. XARELTO [Suspect]
     Indication: CEREBROVASCULAR ACCIDENT PROPHYLAXIS
     Route: 048
     Dates: end: 20130723
  3. XARELTO [Suspect]
     Indication: ATRIAL FIBRILLATION
     Route: 048
  4. XARELTO [Suspect]
     Indication: ATRIAL FIBRILLATION
     Route: 048
     Dates: end: 20130723
  5. FRAGMIN [Concomitant]
     Route: 058
     Dates: end: 20130726
  6. PERFALGAN [Concomitant]
     Route: 042

REACTIONS (12)
  - Retroperitoneal haematoma [Recovering/Resolving]
  - Muscular weakness [Recovering/Resolving]
  - Haemorrhagic anaemia [Recovering/Resolving]
  - Haematoma [Recovering/Resolving]
  - Osteorrhagia [Recovering/Resolving]
  - Intervertebral disc injury [Recovering/Resolving]
  - Melaena [Recovering/Resolving]
  - Weight decreased [Unknown]
  - Skin ulcer [Unknown]
  - Hypoaesthesia [Recovering/Resolving]
  - Bone marrow failure [Recovering/Resolving]
  - Haematoma [Recovering/Resolving]
